FAERS Safety Report 6671154-1 (Version None)
Quarter: 2010Q2

REPORT INFORMATION
  Report Type: 
  Country: None (occurrence: None)
  Receive Date: 20100407
  Receipt Date: 20100324
  Transmission Date: 20101027
  Serious: No
  Sender: FDA-Public Use
  Company Number: US-JNJFOC-20100307597

PATIENT
  Sex: Female
  Weight: 85.73 kg

DRUGS (1)
  1. FENTANYL CITRATE [Suspect]
     Indication: ABDOMINAL PAIN UPPER
     Route: 062

REACTIONS (7)
  - DRUG ADMINISTERED AT INAPPROPRIATE SITE [None]
  - DRUG EFFECT INCREASED [None]
  - DRUG PRESCRIBING ERROR [None]
  - DRY EYE [None]
  - DYSGEUSIA [None]
  - EYE DISORDER [None]
  - EYE IRRITATION [None]
